FAERS Safety Report 4830389-0 (Version None)
Quarter: 2005Q4

REPORT INFORMATION
  Report Type: 
  Country: None (occurrence: None)
  Receive Date: 20051117
  Receipt Date: 20050719
  Transmission Date: 20060501
  Serious: Yes (Hospitalization, Other)
  Sender: FDA-Public Use
  Company Number: PHNU2005DE02590

PATIENT
  Age: 56 Year
  Sex: Female
  Weight: 56.8 kg

DRUGS (3)
  1. ZOMETA [Suspect]
     Indication: METASTASES TO BONE
     Dosage: 4 MG, QMO
     Route: 042
     Dates: start: 20030226, end: 20050615
  2. FEMARA [Concomitant]
     Indication: BREAST CANCER
     Dosage: 2.5 MG, QD
     Route: 048
     Dates: start: 20030201
  3. RADIOTHERAPY [Concomitant]
     Indication: METASTATIC PAIN
     Dosage: 30GY
     Route: 061
     Dates: start: 20030401, end: 20030401

REACTIONS (7)
  - BIOPSY BONE ABNORMAL [None]
  - GINGIVAL ABSCESS [None]
  - GINGIVITIS [None]
  - ORAL SURGERY [None]
  - OSTEITIS [None]
  - OSTEOMYELITIS [None]
  - OSTEONECROSIS [None]
